FAERS Safety Report 7907408-8 (Version None)
Quarter: 2011Q4

REPORT INFORMATION
  Report Type: 
  Country: None (occurrence: None)
  Receive Date: 20111109
  Receipt Date: 20111109
  Transmission Date: 20120403
  Serious: Yes (Life-Threatening, Disabling)
  Sender: FDA-Public Use
  Company Number: None

PATIENT
  Age: 82 Year
  Sex: Male
  Weight: 81.6475 kg

DRUGS (2)
  1. SIMVASTATIN [Suspect]
     Indication: BLOOD CHOLESTEROL
     Dosage: 40MG-DAILY 047
     Route: 048
     Dates: start: 20101208, end: 20110911
  2. AMLODIPINE [Suspect]
     Indication: BLOOD PRESSURE
     Dosage: 5MG-DAILY 047
     Route: 048
     Dates: start: 20100701, end: 20110401

REACTIONS (6)
  - DIZZINESS [None]
  - LOSS OF CONSCIOUSNESS [None]
  - DISORIENTATION [None]
  - MOBILITY DECREASED [None]
  - ROAD TRAFFIC ACCIDENT [None]
  - IMPAIRED DRIVING ABILITY [None]
